FAERS Safety Report 4580218-8 (Version None)
Quarter: 2005Q1

REPORT INFORMATION
  Report Type: 
  Country: None (occurrence: None)
  Receive Date: 20050127
  Receipt Date: 20040824
  Transmission Date: 20050727
  Serious: No
  Sender: FDA-Public Use
  Company Number: USA031049974

PATIENT
  Age: 15 Year
  Sex: Male
  Weight: 136 kg

DRUGS (6)
  1. STRATTERA [Suspect]
     Dosage: 100 MG
     Dates: start: 20030701
  2. BENADRYL (DIPHENYDRAMINE HYDROCHLORIDE) [Concomitant]
  3. LISINOPRIL [Concomitant]
  4. KLONOPIN [Concomitant]
  5. ACETAMINOPHEN [Concomitant]
  6. RITALIN [Concomitant]

REACTIONS (2)
  - OESOPHAGEAL PAIN [None]
  - SOMNOLENCE [None]
